FAERS Safety Report 14987473 (Version 2)
Quarter: 2018Q2

REPORT INFORMATION
  Report Type: Spontaneous
  Country: US (occurrence: US)
  Receive Date: 20180608
  Receipt Date: 20180613
  Transmission Date: 20180711
  Serious: Yes (Death, Other)
  Sender: FDA-Public Use
  Company Number: US-ROCHE-2134662

PATIENT
  Age: 58 Year
  Sex: Female

DRUGS (12)
  1. PROZAC [Concomitant]
     Active Substance: FLUOXETINE HYDROCHLORIDE
  2. RESTORIL [Concomitant]
     Active Substance: TEMAZEPAM
     Dosage: PM
     Route: 065
  3. NORTRIPTYLINE [Concomitant]
     Active Substance: NORTRIPTYLINE
  4. OCREVUS [Suspect]
     Active Substance: OCRELIZUMAB
     Route: 065
     Dates: start: 20170727
  5. OCREVUS [Suspect]
     Active Substance: OCRELIZUMAB
     Indication: PRODUCT USED FOR UNKNOWN INDICATION
     Route: 065
     Dates: start: 20170705
  6. OCREVUS [Suspect]
     Active Substance: OCRELIZUMAB
     Route: 065
     Dates: start: 20180118
  7. XANAX [Concomitant]
     Active Substance: ALPRAZOLAM
  8. REMERON [Concomitant]
     Active Substance: MIRTAZAPINE
  9. GABAPENTIN. [Concomitant]
     Active Substance: GABAPENTIN
  10. TOPAMAX [Concomitant]
     Active Substance: TOPIRAMATE
  11. TRAMADOL. [Concomitant]
     Active Substance: TRAMADOL
  12. SEROQUEL [Concomitant]
     Active Substance: QUETIAPINE FUMARATE

REACTIONS (5)
  - Dyspnoea [Unknown]
  - Cough [Unknown]
  - Death [Fatal]
  - Chest pain [Unknown]
  - Chest discomfort [Unknown]

NARRATIVE: CASE EVENT DATE: 20180524
